FAERS Safety Report 12903795 (Version 2)
Quarter: 2016Q4

REPORT INFORMATION
  Report Type: Report from Study
  Country: MX (occurrence: MX)
  Receive Date: 20161102
  Receipt Date: 20161201
  Transmission Date: 20170207
  Serious: Yes (Other)
  Sender: FDA-Public Use
  Company Number: PHHY2016MX149801

PATIENT
  Age: 56 Year
  Sex: Female
  Weight: 78 kg

DRUGS (3)
  1. TEGRETOL [Suspect]
     Active Substance: CARBAMAZEPINE
     Indication: SEIZURE
     Dosage: 0.5 DF, BID (0.5 IN THE MORNING AND 0.5 IN THE MORNING)
     Route: 048
     Dates: end: 201605
  2. TEGRETOL [Suspect]
     Active Substance: CARBAMAZEPINE
     Dosage: 1 DF, UNK
     Route: 048
     Dates: start: 201609
  3. TEGRETOL [Suspect]
     Active Substance: CARBAMAZEPINE
     Indication: SEIZURE
     Dosage: 200 MG, QD (0.5 IN THE MORNING AND 0.5 IN THE MORNING)
     Route: 048
     Dates: start: 201606, end: 201608

REACTIONS (3)
  - Petit mal epilepsy [Recovered/Resolved]
  - Depressed mood [Recovered/Resolved]
  - Fear [Recovered/Resolved]

NARRATIVE: CASE EVENT DATE: 201607
